FAERS Safety Report 8473214-1 (Version None)
Quarter: 2012Q2

REPORT INFORMATION
  Report Type: 
  Country: None (occurrence: None)
  Receive Date: 20120627
  Receipt Date: 20120619
  Transmission Date: 20120825
  Serious: Yes (Other)
  Sender: FDA-Public Use
  Company Number: US-ELI_LILLY_AND_COMPANY-US201205009547

PATIENT
  Sex: Male
  Weight: 83.9 kg

DRUGS (20)
  1. DIOVAN [Concomitant]
     Dosage: 80 MG, QD
     Route: 048
  2. FOLIC ACID [Concomitant]
     Dosage: 2 MG, QD
     Route: 048
  3. METOPROLOL TARTRATE [Concomitant]
     Indication: BLOOD PRESSURE
     Dosage: 150 MG, QD
     Route: 048
     Dates: end: 20120601
  4. BYDUREON [Suspect]
     Indication: TYPE 2 DIABETES MELLITUS
     Dosage: 2 MG, WEEKLY (1/W)
     Route: 058
     Dates: start: 20120513, end: 20120603
  5. BYETTA [Suspect]
     Indication: TYPE 2 DIABETES MELLITUS
     Dosage: 5 UG, BID
     Route: 058
     Dates: start: 20050101
  6. BYETTA [Suspect]
     Dosage: 10 UG, BID
     Route: 058
     Dates: end: 20120514
  7. GLUCOPHAGE                              /USA/ [Concomitant]
     Indication: TYPE 2 DIABETES MELLITUS
     Dosage: 500 MG, EACH MORNING
     Route: 048
     Dates: end: 20120607
  8. GLIPIZIDE [Concomitant]
     Indication: TYPE 2 DIABETES MELLITUS
     Dosage: 10 MG, BID
     Route: 048
  9. BYETTA [Suspect]
     Dosage: 5 UG, BID
     Route: 058
     Dates: start: 20120611
  10. GLUCOPHAGE                              /USA/ [Concomitant]
     Dosage: 1000 MG, EACH EVENING
     Route: 048
  11. TRILIPIX [Concomitant]
     Dosage: 135 MG, QD
     Route: 048
  12. ZETIA [Concomitant]
     Dosage: 10 MG, QD
     Route: 048
  13. LIPITOR [Concomitant]
     Dosage: 80 MG, QD
     Route: 048
  14. CARVEDILOL [Concomitant]
     Dosage: 25 MG, BID
     Route: 048
     Dates: start: 20120601
  15. PREVACID [Concomitant]
     Dosage: 30 MG, QD
     Route: 048
  16. ASPIRIN                                 /USA/ [Concomitant]
     Dosage: UNK
     Route: 048
  17. VITAMIN B-12 [Concomitant]
     Dosage: UNK, QD
     Route: 048
  18. MULTI-VITAMIN [Concomitant]
     Dosage: UNK, QD
     Route: 048
  19. FLOMAX [Concomitant]
     Dosage: 0.4 MG, QD
     Route: 048
  20. VITAMIN B6 [Concomitant]
     Dosage: UNK, QD
     Route: 048

REACTIONS (10)
  - BLOOD GLUCOSE DECREASED [None]
  - BLOOD CREATININE INCREASED [None]
  - DIZZINESS [None]
  - INJECTION SITE HAEMORRHAGE [None]
  - INTENTIONAL DRUG MISUSE [None]
  - CARDIAC FLUTTER [None]
  - NAUSEA [None]
  - BLOOD GLUCOSE INCREASED [None]
  - FATIGUE [None]
  - INFLUENZA [None]
